FAERS Safety Report 10161999 (Version 6)
Quarter: 2016Q2

REPORT INFORMATION
  Report Type: Spontaneous
  Country: US (occurrence: US)
  Receive Date: 20140509
  Receipt Date: 20160623
  Transmission Date: 20160815
  Serious: Yes (Hospitalization, Disabling, Other)
  Sender: FDA-Public Use
  Company Number: US-009507513-1404USA015563

PATIENT
  Sex: Female

DRUGS (4)
  1. ACTONEL [Suspect]
     Active Substance: RISEDRONATE SODIUM
     Indication: OSTEOPOROSIS
     Dosage: 150 MG, QM
     Route: 048
     Dates: start: 2009, end: 201010
  2. BONIVA [Suspect]
     Active Substance: IBANDRONATE SODIUM
     Indication: OSTEOPOROSIS
     Dosage: 150 MG, QM
     Route: 048
     Dates: start: 200706, end: 200803
  3. FORTEO [Suspect]
     Active Substance: TERIPARATIDE
     Dosage: UNK
     Dates: start: 201103, end: 201303
  4. FOSAMAX [Suspect]
     Active Substance: ALENDRONATE SODIUM
     Indication: OSTEOPOROSIS
     Dosage: 70 MG, QW
     Route: 048
     Dates: start: 1997, end: 200705

REACTIONS (16)
  - Femur fracture [Unknown]
  - Blood glucose increased [Unknown]
  - Low turnover osteopathy [Unknown]
  - Oropharyngeal pain [Unknown]
  - Vitamin D decreased [Unknown]
  - Joint effusion [Unknown]
  - Haemorrhagic anaemia [Unknown]
  - Fall [Unknown]
  - Blood potassium decreased [Recovered/Resolved]
  - Anxiety [Unknown]
  - Thrombocytopenia [Unknown]
  - Intestinal polyp [Unknown]
  - Impaired healing [Unknown]
  - Inflammatory bowel disease [Unknown]
  - Irritable bowel syndrome [Unknown]
  - Constipation [Unknown]

NARRATIVE: CASE EVENT DATE: 2011
